FAERS Safety Report 10028512 (Version 1)
Quarter: 2014Q1

REPORT INFORMATION
  Report Type: Spontaneous
  Country: JP (occurrence: None)
  Receive Date: 20140310
  Receipt Date: 20140310
  Transmission Date: 20141002
  Serious: Yes (Other)
  Sender: FDA-Public Use
  Company Number: 2014P1001138

PATIENT
  Age: 10 Year
  Sex: Female
  Weight: 28.7 kg

DRUGS (4)
  1. ZONISAMIDE [Suspect]
     Indication: EPILEPSY
  2. VALPROIC ACID [Concomitant]
  3. PHENOBARBITAL [Concomitant]
  4. CLONAZEPAM [Concomitant]

REACTIONS (9)
  - Hydronephrosis [None]
  - Nephrolithiasis [None]
  - Dehydration [None]
  - Klebsiella test positive [None]
  - Renal impairment [None]
  - Haematuria [None]
  - Crystalluria [None]
  - Calculus ureteric [None]
  - Culture urine positive [None]
